FAERS Safety Report 8373253-5 (Version None)
Quarter: 2012Q2

REPORT INFORMATION
  Report Type: 
  Country: None (occurrence: None)
  Receive Date: 20120521
  Receipt Date: 20120515
  Transmission Date: 20120825
  Serious: Yes (Other)
  Sender: FDA-Public Use
  Company Number: US-PFIZER INC-2012058838

PATIENT
  Sex: Male

DRUGS (2)
  1. XYNTHA [Suspect]
     Indication: FACTOR VIII DEFICIENCY
     Dosage: UNK
     Dates: start: 20110101
  2. XYNTHA [Suspect]
     Indication: HAEMOPHILIA
     Dosage: UNK
     Dates: start: 20110101

REACTIONS (2)
  - HAEMORRHAGE [None]
  - GAIT DISTURBANCE [None]
